FAERS Safety Report 6430676-9 (Version None)
Quarter: 2009Q4

REPORT INFORMATION
  Report Type: 
  Country: None (occurrence: None)
  Receive Date: 20091106
  Receipt Date: 20091029
  Transmission Date: 20100525
  Serious: Yes (Life-Threatening, Hospitalization)
  Sender: FDA-Public Use
  Company Number: B0602027A

PATIENT
  Sex: Female
  Weight: 54 kg

DRUGS (1)
  1. SEROXAT [Suspect]
     Indication: OBSESSIVE-COMPULSIVE DISORDER
     Dosage: 20MG PER DAY
     Route: 048
     Dates: start: 19990412

REACTIONS (12)
  - AMNESIA [None]
  - APATHY [None]
  - EPISTAXIS [None]
  - HALLUCINATION, AUDITORY [None]
  - INTENTIONAL SELF-INJURY [None]
  - NIGHTMARE [None]
  - PANIC ATTACK [None]
  - PERSONALITY CHANGE [None]
  - PSYCHOTIC DISORDER [None]
  - RESTLESSNESS [None]
  - SUICIDAL IDEATION [None]
  - VISION BLURRED [None]
